FAERS Safety Report 8525475-8 (Version None)
Quarter: 2012Q3

REPORT INFORMATION
  Report Type: 
  Country: None (occurrence: None)
  Receive Date: 20120720
  Receipt Date: 20120712
  Transmission Date: 20120928
  Serious: Yes (Death, Hospitalization, Other)
  Sender: FDA-Public Use
  Company Number: US-BAYER-2012-017407

PATIENT
  Age: 72 Year
  Sex: Female

DRUGS (8)
  1. NEXAVAR [Suspect]
     Indication: ACUTE MYELOID LEUKAEMIA
     Dosage: 200 MG, BID
     Dates: start: 20120214, end: 20120217
  2. NEXAVAR [Suspect]
     Dosage: 400 MG, BID
     Dates: start: 20120101
  3. NEXAVAR [Suspect]
     Dosage: 200 MG, QD
     Dates: start: 20120220
  4. INSULIN [Concomitant]
  5. BLOOD AND RELATED PRODUCTS [Concomitant]
     Dosage: EVERY 9 DAYS
     Dates: start: 20120301
  6. ANTIHYPERTENSIVES [Concomitant]
  7. NEXAVAR [Suspect]
     Dosage: 1 AM AND 1 PM (DOSAGE ADJUSTED DAILY BASED ON BILIRUBUIN RESULTS)
  8. PLATELETS [Concomitant]
     Dosage: EVERY 9 DAYS
     Dates: start: 20120301

REACTIONS (10)
  - HAEMATOCHEZIA [None]
  - PLATELET TRANSFUSION [None]
  - BLOOD BILIRUBIN INCREASED [None]
  - FLUID RETENTION [None]
  - RASH PRURITIC [None]
  - VOMITING [None]
  - TRANSFUSION [None]
  - NAUSEA [None]
  - DEATH [None]
  - NO ADVERSE EVENT [None]
